FAERS Safety Report 4723895-0 (Version None)
Quarter: 2005Q3

REPORT INFORMATION
  Report Type: 
  Country: None (occurrence: None)
  Receive Date: 20050722
  Receipt Date: 20050712
  Transmission Date: 20060218
  Serious: Yes (Hospitalization, Disabling, Other)
  Sender: FDA-Public Use
  Company Number: 2005102491

PATIENT
  Age: 80 Year
  Sex: Female
  Weight: 61.2356 kg

DRUGS (2)
  1. BEXTRA [Suspect]
     Indication: ARTHRITIS
     Dosage: 20  MG (20 MG, 1 IN 1 D)
     Dates: start: 20020101, end: 20050401
  2. FOSAMAX [Concomitant]

REACTIONS (4)
  - FALL [None]
  - INCORRECT DOSE ADMINISTERED [None]
  - JOINT DISLOCATION [None]
  - MYOCARDIAL INFARCTION [None]
